FAERS Safety Report 6869638-6 (Version None)
Quarter: 2010Q3

REPORT INFORMATION
  Report Type: 
  Country: None (occurrence: None)
  Receive Date: 20100722
  Receipt Date: 20080822
  Transmission Date: 20110219
  Serious: No
  Sender: FDA-Public Use
  Company Number: US-PFIZER INC-2008070808

PATIENT
  Age: 54 Year
  Sex: Female
  Weight: 209.1 kg

DRUGS (1)
  1. CHANTIX [Suspect]
     Indication: SMOKING CESSATION THERAPY
     Dates: start: 20080701

REACTIONS (8)
  - ANXIETY [None]
  - DISORIENTATION [None]
  - DISTURBANCE IN ATTENTION [None]
  - DYSLEXIA [None]
  - LEARNING DISABILITY [None]
  - MENTAL DISORDER [None]
  - PANIC REACTION [None]
  - STRESS [None]
